FAERS Safety Report 18921026 (Version 3)
Quarter: 2022Q2

REPORT INFORMATION
  Report Type: Spontaneous
  Country: IT (occurrence: IT)
  Receive Date: 20210222
  Receipt Date: 20220519
  Transmission Date: 20220720
  Serious: Yes (Other)
  Sender: FDA-Public Use
  Company Number: IT-MLMSERVICE-20210210-2717586-1

PATIENT
  Age: 40 Year
  Sex: Male

DRUGS (2)
  1. SILDENAFIL CITRATE [Suspect]
     Active Substance: SILDENAFIL CITRATE
     Indication: Erectile dysfunction
     Dosage: 25-50MG, TWICE/THREE TIMES A WEEK
  2. SILDENAFIL CITRATE [Suspect]
     Active Substance: SILDENAFIL CITRATE
     Dosage: 25-50MG, TWICE/THREE TIMES A WEEK

REACTIONS (2)
  - Drug abuse [Recovered/Resolved]
  - Aggression [Recovered/Resolved]
